FAERS Safety Report 8150998 (Version 4)
Quarter: 2014Q3

REPORT INFORMATION
  Report Type: Spontaneous
  Country: US (occurrence: US)
  Receive Date: 20110922
  Receipt Date: 20140916
  Transmission Date: 20150326
  Serious: Yes (Other)
  Sender: FDA-Public Use
  Company Number: US-ASTRAZENECA-2011SE33695

PATIENT
  Age: 32 Year
  Sex: Male
  Weight: 108 kg

DRUGS (7)
  1. SEROQUEL XR [Suspect]
     Active Substance: QUETIAPINE FUMARATE
     Indication: BIPOLAR DISORDER
     Route: 048
  2. XANAX [Concomitant]
     Active Substance: ALPRAZOLAM
     Indication: ANXIETY
     Dates: start: 1999
  3. SEROQUEL XR [Suspect]
     Active Substance: QUETIAPINE FUMARATE
     Indication: BIPOLAR DISORDER
     Route: 048
     Dates: start: 2005, end: 2010
  4. NEXIUM [Suspect]
     Active Substance: ESOMEPRAZOLE MAGNESIUM
     Route: 048
  5. CYMBALTA [Concomitant]
     Active Substance: DULOXETINE HYDROCHLORIDE
     Indication: DEPRESSION
     Dates: start: 2005
  6. SEROQUEL XR [Suspect]
     Active Substance: QUETIAPINE FUMARATE
     Indication: BIPOLAR DISORDER
     Route: 048
     Dates: start: 2010, end: 201408
  7. SEROQUEL XR [Suspect]
     Active Substance: QUETIAPINE FUMARATE
     Indication: BIPOLAR DISORDER
     Route: 048

REACTIONS (13)
  - Ketoacidosis [Unknown]
  - Convulsion [Unknown]
  - Diabetes mellitus [Unknown]
  - Psychotic disorder [Unknown]
  - Drug dose omission [Not Recovered/Not Resolved]
  - Facial bones fracture [Unknown]
  - Malaise [Unknown]
  - Activities of daily living impaired [Unknown]
  - Insomnia [Unknown]
  - Mania [Unknown]
  - Tachycardia [Unknown]
  - Aphagia [Unknown]
  - Weight increased [Unknown]

NARRATIVE: CASE EVENT DATE: 2008
